FAERS Safety Report 5382564-7 (Version None)
Quarter: 2007Q3

REPORT INFORMATION
  Report Type: 
  Country: None (occurrence: None)
  Receive Date: 20070710
  Receipt Date: 20070705
  Transmission Date: 20080115
  Serious: Yes (Death, Hospitalization)
  Sender: FDA-Public Use
  Company Number: PHBS2007JP08592

PATIENT
  Age: 76 Year
  Sex: Female

DRUGS (2)
  1. GLEEVEC [Suspect]
     Indication: GASTROINTESTINAL STROMAL TUMOUR
     Dosage: 400 MG/D
     Route: 048
     Dates: start: 20070207, end: 20070504
  2. GASTER [Concomitant]
     Indication: GASTRITIS PROPHYLAXIS
     Dosage: 20 MG/D
     Route: 048
     Dates: start: 20070410, end: 20070504

REACTIONS (9)
  - ANOREXIA [None]
  - BLOOD BETA-D-GLUCAN INCREASED [None]
  - COUGH [None]
  - DYSPNOEA [None]
  - GENERALISED OEDEMA [None]
  - INTERSTITIAL LUNG DISEASE [None]
  - MALAISE [None]
  - OXYGEN SATURATION DECREASED [None]
  - RASH GENERALISED [None]
